FAERS Safety Report 9012032 (Version 1)
Quarter: 2012Q4

REPORT INFORMATION
  Report Type: Spontaneous
  Country: GB (occurrence: None)
  Receive Date: 20121228
  Receipt Date: 20121228
  Transmission Date: 20130627
  Serious: Yes (Other)
  Sender: FDA-Public Use
  Company Number: 2012-22735

PATIENT
  Age: 80 Year
  Sex: Female

DRUGS (5)
  1. IBUPROFEN (IBUPROFEN) [Suspect]
     Indication: PAIN IN HIP
     Route: 048
  2. DORZOLAMIDE (DORZOLAMIDE) [Concomitant]
  3. LATANOPROST (LATANOPROST) [Concomitant]
  4. LEVOBUNOLOL HYDROCHLORIDE (LEVOBUNOLOL HYDROCHLORIDE) [Concomitant]
  5. METHOTREXATE (METHOTREXATE) [Concomitant]

REACTIONS (1)
  - Acute generalised exanthematous pustulosis [None]
